FAERS Safety Report 10470323 (Version 9)
Quarter: 2016Q2

REPORT INFORMATION
  Report Type: Spontaneous
  Country: US (occurrence: US)
  Receive Date: 20140923
  Receipt Date: 20160621
  Transmission Date: 20160815
  Serious: Yes (Hospitalization, Other)
  Sender: FDA-Public Use
  Company Number: US-PFIZER INC-2014258770

PATIENT
  Age: 70 Year
  Sex: Female
  Weight: 81.65 kg

DRUGS (1)
  1. REVATIO [Suspect]
     Active Substance: SILDENAFIL CITRATE
     Dosage: UNK

REACTIONS (19)
  - Condition aggravated [Unknown]
  - General physical health deterioration [Unknown]
  - Blood pressure increased [Unknown]
  - Feeling abnormal [Unknown]
  - Malaise [Unknown]
  - Arthropathy [Unknown]
  - Cold sweat [Unknown]
  - Contusion [Unknown]
  - Fatigue [Unknown]
  - Asthenia [Unknown]
  - Diabetes mellitus [Unknown]
  - Fall [Recovered/Resolved]
  - Sciatica [Unknown]
  - Thrombosis [Unknown]
  - Insomnia [Unknown]
  - Stress [Unknown]
  - Cardiac fibrillation [Unknown]
  - Cardiac disorder [Unknown]
  - Gait disturbance [Unknown]
